FAERS Safety Report 7998372-4 (Version None)
Quarter: 2011Q4

REPORT INFORMATION
  Report Type: 
  Country: None (occurrence: None)
  Receive Date: 20111221
  Receipt Date: 20110819
  Transmission Date: 20120403
  Serious: No
  Sender: FDA-Public Use
  Company Number: US-GLAXOSMITHKLINE-A0941732A

PATIENT
  Age: 36 Year
  Sex: Female
  Weight: 100 kg

DRUGS (7)
  1. LEVEMIR [Concomitant]
     Route: 058
  2. LOVAZA [Suspect]
     Indication: PRODUCT USED FOR UNKNOWN INDICATION
     Dosage: 4G PER DAY
     Route: 048
     Dates: start: 20090401
  3. PROTONIX [Concomitant]
     Route: 048
  4. ADVAIR DISKUS 100/50 [Concomitant]
     Route: 055
     Dates: start: 20110701
  5. ORENCIA [Concomitant]
     Route: 048
  6. METFORMIN HCL [Concomitant]
     Route: 048
  7. ACTOS [Concomitant]
     Route: 048

REACTIONS (3)
  - NAUSEA [None]
  - DRUG ADMINISTRATION ERROR [None]
  - VOMITING PROJECTILE [None]
